FAERS Safety Report 15930172 (Version 2)
Quarter: 2019Q1

REPORT INFORMATION
  Report Type: Spontaneous
  Country: CN (occurrence: CN)
  Receive Date: 20190206
  Receipt Date: 20190210
  Transmission Date: 20190417
  Serious: Yes (Other)
  Sender: FDA-Public Use
  Company Number: CN-BAXTER-2019BAX002265

PATIENT
  Age: 14 Year
  Sex: Male
  Weight: 11 kg

DRUGS (15)
  1. MAGNESIUM SULFATE. [Suspect]
     Active Substance: MAGNESIUM SULFATE
     Dosage: DOSE RE-INTRODUCED WITH INCREASED DOSE OF 0.3 GRAM
     Route: 041
  2. NOVAMIN (AMINO ACIDS NOS) [Suspect]
     Active Substance: AMINO ACIDS
     Dosage: DOSE RE-INTRODUCED WITH REDUCED DOSE OF 100 ML
     Route: 041
  3. MEDIUM AND LONG CHAIN FAT EMULSION INJECTION (C8-24) [Suspect]
     Active Substance: GLYCERIN\MEDIUM-CHAIN TRIGLYCERIDES\PHOSPHOLIPID\SOYBEAN OIL
     Dosage: DOSE RE-INTRODUCED WITH REDUCED DOSE OF 50ML
     Route: 041
  4. GLUCOSE [Suspect]
     Active Substance: DEXTROSE
     Indication: NUTRITIONAL SUPPLEMENTATION
     Route: 041
     Dates: start: 20181209, end: 20181211
  5. POTASSIUM CHLORIDE. [Suspect]
     Active Substance: POTASSIUM CHLORIDE
     Indication: NUTRITIONAL SUPPLEMENTATION
     Route: 041
     Dates: start: 20181209, end: 20181215
  6. ADDAMEL [Suspect]
     Active Substance: ELECTROLYTES NOS\MINERALS\SORBITOL
     Indication: NUTRITIONAL SUPPLEMENTATION
     Route: 041
     Dates: start: 20181209, end: 20181211
  7. COMPOUND POTASSIUM PHOSPHATES [Suspect]
     Active Substance: POTASSIUM PHOSPHATE, DIBASIC\POTASSIUM PHOSPHATE, MONOBASIC
     Dosage: DRUG RE-INTRODUCED
     Route: 041
  8. ADDAMEL [Suspect]
     Active Substance: ELECTROLYTES NOS\MINERALS\SORBITOL
     Dosage: DRUG-REINTRODUCED
     Route: 065
  9. NOVAMIN (AMINO ACIDS NOS) [Suspect]
     Active Substance: AMINO ACIDS
     Indication: NUTRITIONAL SUPPLEMENTATION
     Route: 041
     Dates: start: 20181209, end: 20181215
  10. GLUCOSE [Suspect]
     Active Substance: DEXTROSE
     Dosage: DRUG RE-INTRODUCED
     Route: 065
  11. MEDIUM AND LONG CHAIN FAT EMULSION INJECTION (C8-24) [Suspect]
     Active Substance: GLYCERIN\MEDIUM-CHAIN TRIGLYCERIDES\PHOSPHOLIPID\SOYBEAN OIL
     Indication: NUTRITIONAL SUPPLEMENTATION
     Route: 041
     Dates: start: 20181209, end: 20181215
  12. POTASSIUM CHLORIDE. [Suspect]
     Active Substance: POTASSIUM CHLORIDE
     Dosage: DRUG RE-INTRODUCED
     Route: 041
  13. COMPOUND POTASSIUM PHOSPHATES [Suspect]
     Active Substance: POTASSIUM PHOSPHATE, DIBASIC\POTASSIUM PHOSPHATE, MONOBASIC
     Indication: NUTRITIONAL SUPPLEMENTATION
     Route: 041
     Dates: start: 20181209, end: 20181215
  14. 10% GLUCOSE  INJECTION [Suspect]
     Active Substance: DEXTROSE
     Indication: NUTRITIONAL SUPPLEMENTATION
     Route: 041
     Dates: start: 20181209
  15. MAGNESIUM SULFATE. [Suspect]
     Active Substance: MAGNESIUM SULFATE
     Indication: NUTRITIONAL SUPPLEMENTATION
     Route: 041
     Dates: start: 20181209, end: 20181215

REACTIONS (4)
  - Refeeding syndrome [Recovering/Resolving]
  - Dysphonia [Recovering/Resolving]
  - Localised oedema [Recovering/Resolving]
  - Blood phosphorus decreased [Recovering/Resolving]

NARRATIVE: CASE EVENT DATE: 201812
